FAERS Safety Report 12891571 (Version 2)
Quarter: 2017Q2

REPORT INFORMATION
  Report Type: Spontaneous
  Country: US (occurrence: US)
  Receive Date: 20161028
  Receipt Date: 20170406
  Transmission Date: 20170830
  Serious: No
  Sender: FDA-Public Use
  Company Number: US-TEVA-707463USA

PATIENT
  Sex: Male

DRUGS (7)
  1. BUPROPION. [Concomitant]
     Active Substance: BUPROPION
  2. IBUPROFEN. [Concomitant]
     Active Substance: IBUPROFEN
  3. NICOTINE TRANSDERMAL SYSTEM [Concomitant]
     Active Substance: NICOTINE
  4. ZITHROMAX [Concomitant]
     Active Substance: AZITHROMYCIN DIHYDRATE
  5. COPAXONE [Suspect]
     Active Substance: GLATIRAMER ACETATE
     Indication: MULTIPLE SCLEROSIS
     Route: 058
     Dates: start: 20160127
  6. VENTOLIN [Concomitant]
     Active Substance: ALBUTEROL SULFATE
  7. ANORO ELLIPTA [Concomitant]
     Active Substance: UMECLIDINIUM BROMIDE\VILANTEROL TRIFENATATE

REACTIONS (1)
  - Injection site urticaria [Recovered/Resolved]

NARRATIVE: CASE EVENT DATE: 2016
